FAERS Safety Report 7784163-6 (Version None)
Quarter: 2011Q3

REPORT INFORMATION
  Report Type: 
  Country: None (occurrence: None)
  Receive Date: 20110928
  Receipt Date: 20110915
  Transmission Date: 20111222
  Serious: Yes (Hospitalization)
  Sender: FDA-Public Use
  Company Number: US-ELI_LILLY_AND_COMPANY-US201108004187

PATIENT
  Age: 63 Year
  Sex: Female

DRUGS (3)
  1. FORTEO [Suspect]
     Dosage: 20 UG, QD
     Route: 065
     Dates: start: 20110401
  2. FORTEO [Suspect]
     Indication: OSTEOPOROSIS
     Dosage: 20 UG, QD
     Route: 065
     Dates: start: 20110401
  3. INSULIN [Concomitant]
     Indication: DIABETES MELLITUS

REACTIONS (10)
  - ASTHENIA [None]
  - BLOOD CALCIUM INCREASED [None]
  - TENDON DISORDER [None]
  - MUSCULAR WEAKNESS [None]
  - FRACTURE [None]
  - FALL [None]
  - ANKLE FRACTURE [None]
  - THIRST [None]
  - POLYDIPSIA [None]
  - LOWER LIMB FRACTURE [None]
